FAERS Safety Report 5818041-6 (Version None)
Quarter: 2008Q3

REPORT INFORMATION
  Report Type: 
  Country: None (occurrence: None)
  Receive Date: 20080722
  Receipt Date: 20070803
  Transmission Date: 20090109
  Serious: No
  Sender: FDA-Public Use
  Company Number: US-BAYER-US-2007-029684

PATIENT

DRUGS (1)
  1. MAGNEVIST [Suspect]

REACTIONS (2)
  - NAUSEA [None]
  - VOMITING [None]
